FAERS Safety Report 9839924 (Version 2)
Quarter: 2014Q1

REPORT INFORMATION
  Report Type: Spontaneous
  Country: US (occurrence: US)
  Receive Date: 20140124
  Receipt Date: 20140213
  Transmission Date: 20141002
  Serious: No
  Sender: FDA-Public Use
  Company Number: US-009507513-1401USA005287

PATIENT
  Sex: Female
  Weight: 285 kg

DRUGS (1)
  1. NEXPLANON [Suspect]
     Dosage: UNK
     Route: 059
     Dates: start: 20131127, end: 20140116

REACTIONS (2)
  - Device breakage [Recovered/Resolved]
  - No adverse event [Unknown]
